FAERS Safety Report 6850278-X (Version None)
Quarter: 2010Q3

REPORT INFORMATION
  Report Type: 
  Country: None (occurrence: None)
  Receive Date: 20100716
  Receipt Date: 20071011
  Transmission Date: 20110219
  Serious: Yes (Other)
  Sender: FDA-Public Use
  Company Number: US-PFIZER INC-2007087161

PATIENT
  Sex: Male
  Weight: 73.9 kg

DRUGS (5)
  1. CHANTIX [Suspect]
     Indication: SMOKING CESSATION THERAPY
     Dates: start: 20071001
  2. PLAVIX [Concomitant]
  3. LIPITOR [Concomitant]
  4. TYLENOL [Concomitant]
  5. OTHER RESPIRATORY SYSTEM PRODUCTS [Concomitant]
     Indication: LUNG DISORDER

REACTIONS (3)
  - DIARRHOEA [None]
  - FLATULENCE [None]
  - MUSCLE SPASMS [None]
